FAERS Safety Report 5678512-2 (Version None)
Quarter: 2008Q1

REPORT INFORMATION
  Report Type: 
  Country: None (occurrence: None)
  Receive Date: 20080325
  Receipt Date: 20071204
  Transmission Date: 20080703
  Serious: No
  Sender: FDA-Public Use
  Company Number: US-BAYER-200716018NA

PATIENT
  Age: 43 Year
  Sex: Female
  Weight: 59 kg

DRUGS (1)
  1. MIRENA [Suspect]
     Indication: CONTRACEPTION
     Route: 015
     Dates: start: 20061101

REACTIONS (1)
  - VAGINAL HAEMORRHAGE [None]
